FAERS Safety Report 5957643-3 (Version None)
Quarter: 2008Q4

REPORT INFORMATION
  Report Type: 
  Country: None (occurrence: None)
  Receive Date: 20081110
  Receipt Date: 20081028
  Transmission Date: 20090506
  Serious: Yes (Other)
  Sender: FDA-Public Use
  Company Number: CHPA2008US18579

PATIENT
  Age: 2 Year
  Sex: Female

DRUGS (1)
  1. DEXTROMETHORPHAN HYDROBROMIDE [Suspect]
     Indication: NASOPHARYNGITIS
     Dosage: LESS THAN 0.5 TEASPOON, QD, ORAL
     Route: 048
     Dates: start: 20080101, end: 20080101

REACTIONS (1)
  - CONVULSION [None]
